FAERS Safety Report 7458948-X (Version None)
Quarter: 2011Q2

REPORT INFORMATION
  Report Type: 
  Country: None (occurrence: None)
  Receive Date: 20110504
  Receipt Date: 20100810
  Transmission Date: 20111010
  Serious: No
  Sender: FDA-Public Use
  Company Number: US-SANOFI-AVENTIS-2010SA049183

PATIENT
  Age: 63 Year
  Sex: Male

DRUGS (4)
  1. SOLOSTAR [Suspect]
  2. OPTICLICK [Suspect]
  3. LANTUS [Suspect]
     Dosage: DOSE:42 UNIT(S)
     Route: 058
  4. APIDRA [Suspect]
     Dosage: DOSE:12 UNIT(S)
     Route: 058

REACTIONS (2)
  - ARTHROPOD BITE [None]
  - EYE INJURY [None]
